FAERS Safety Report 8506979-0 (Version None)
Quarter: 2012Q3

REPORT INFORMATION
  Report Type: 
  Country: None (occurrence: None)
  Receive Date: 20120712
  Receipt Date: 20120708
  Transmission Date: 20120928
  Serious: Yes (Other)
  Sender: FDA-Public Use
  Company Number: US-PFIZER INC-2012164041

PATIENT

DRUGS (1)
  1. LYRICA [Suspect]
     Dosage: UNK

REACTIONS (5)
  - CYANOSIS CENTRAL [None]
  - SWOLLEN TONGUE [None]
  - TRISMUS [None]
  - PHARYNGEAL OEDEMA [None]
  - APPARENT DEATH [None]
